FAERS Safety Report 17406171 (Version 1)
Quarter: 2020Q1

REPORT INFORMATION
  Report Type: Spontaneous
  Country: US (occurrence: US)
  Receive Date: 20200211
  Receipt Date: 20200211
  Transmission Date: 20200409
  Serious: Yes (Other)
  Sender: FDA-Public Use
  Company Number: None

PATIENT
  Age: 55 Year
  Sex: Female
  Weight: 63 kg

DRUGS (4)
  1. ANTACID (CALCIUM CARBONATE) [Suspect]
     Active Substance: CALCIUM CARBONATE
  2. NIGHTTIME SLEEP AID (DIPHENHYDRAMINE HYDROCHLORIDE) [Suspect]
     Active Substance: DIPHENHYDRAMINE HYDROCHLORIDE
  3. ASSURED ALLERGY RELIEF [Suspect]
     Active Substance: DIPHENHYDRAMINE HYDROCHLORIDE
     Indication: HYPERSENSITIVITY
     Dosage: ?          QUANTITY:2 TABLET(S);?
     Route: 048
  4. ACETAMINOPHEN. [Suspect]
     Active Substance: ACETAMINOPHEN

REACTIONS (6)
  - Hypersensitivity [None]
  - Urticaria [None]
  - Pruritus [None]
  - Rash [None]
  - Therapy cessation [None]
  - Wound [None]

NARRATIVE: CASE EVENT DATE: 20190301
